FAERS Safety Report 14173068 (Version 1)
Quarter: 2017Q4

REPORT INFORMATION
  Report Type: Report from Study
  Country: None (occurrence: FR)
  Receive Date: 20171109
  Receipt Date: 20171109
  Transmission Date: 20180321
  Serious: Yes (Hospitalization)
  Sender: FDA-Public Use
  Company Number: FR-ABBVIE-17K-056-2147288-00

PATIENT
  Age: 38 Year
  Sex: Female

DRUGS (4)
  1. HUMIRA [Suspect]
     Active Substance: ADALIMUMAB
     Indication: UVEITIS
     Dosage: LOADING DOSE OF 40MG INSTEAD OF 80 MG
     Route: 058
     Dates: start: 20171006, end: 20171006
  2. HUMIRA [Suspect]
     Active Substance: ADALIMUMAB
     Route: 058
     Dates: start: 201710
  3. SOLU-MEDROL [Concomitant]
     Active Substance: METHYLPREDNISOLONE SODIUM SUCCINATE
     Indication: UVEITIS
     Dosage: 3 BOLUS OF 1 GR THEN 1G/DAY
     Route: 042
     Dates: start: 20171006
  4. PREDNISOLONE. [Concomitant]
     Active Substance: PREDNISOLONE
     Indication: UVEITIS
     Dosage: ONCE
     Dates: start: 20171006, end: 20171006

REACTIONS (3)
  - Retinal detachment [Unknown]
  - Incorrect dose administered [Unknown]
  - Uveitis [Unknown]

NARRATIVE: CASE EVENT DATE: 201710
